FAERS Safety Report 8877366 (Version 1)
Quarter: 2012Q4

REPORT INFORMATION
  Report Type: 
  Country: US (occurrence: US)
  Receive Date: 20121023
  Receipt Date: 20121023
  Transmission Date: 20130627
  Serious: No
  Sender: FDA-Public Use
  Company Number: US-AMGEN-USASP2012059967

PATIENT
  Age: 66 Year
  Sex: Female
  Weight: 84.81 kg

DRUGS (15)
  1. ENBREL [Suspect]
     Indication: PRODUCT USED FOR UNKNOWN INDICATION
     Dosage: 50 mg, qwk
     Route: 058
  2. METHOTREXATE [Concomitant]
     Dosage: 2.5 mg, UNK
  3. ULTRAM ER [Concomitant]
     Dosage: 100 mg, UNK
  4. LANTUS [Concomitant]
     Dosage: 100 ml, UNK
  5. JANUMET [Concomitant]
     Dosage: 50-1000
  6. ERYTHROMYCIN [Concomitant]
     Dosage: 250 mg, UNK
  7. DARVON /00018802/ [Concomitant]
     Dosage: 65 UNK, UNK
  8. CYMBALTA [Concomitant]
     Dosage: 20 mg, UNK
  9. VITAMIN B-12 [Concomitant]
     Dosage: 1000 mg, UNK
     Route: 058
  10. CHROMIUM [Concomitant]
     Dosage: 1 mg, UNK
  11. OMEPRAZOLE [Concomitant]
     Dosage: 40 mg, UNK
  12. TYLENOL /00020001/ [Concomitant]
     Dosage: 325 mg, UNK
  13. ZOLPIDEM [Concomitant]
     Dosage: 10 mg, UNK
  14. FOLIC ACID [Concomitant]
     Dosage: UNK
  15. MULTIVITAMINS, PLAIN [Concomitant]
     Dosage: UNK

REACTIONS (2)
  - Insomnia [Unknown]
  - Headache [Unknown]
